FAERS Safety Report 20767241 (Version 6)
Quarter: 2022Q3

REPORT INFORMATION
  Report Type: Report from Study
  Country: None (occurrence: CA)
  Receive Date: 20220429
  Receipt Date: 20220926
  Transmission Date: 20221027
  Serious: Yes (Other)
  Sender: FDA-Public Use
  Company Number: CA-AKCEA THERAPEUTICS, INC.-2021IS001794

PATIENT
  Age: 71 Year
  Sex: Female

DRUGS (8)
  1. TEGSEDI [Suspect]
     Active Substance: INOTERSEN SODIUM
     Indication: Hereditary neuropathic amyloidosis
     Route: 058
     Dates: start: 20200617, end: 202203
  2. DEVICE [Suspect]
     Active Substance: DEVICE
  3. TEGSEDI [Suspect]
     Active Substance: INOTERSEN SODIUM
     Route: 058
  4. AVENTYL [Concomitant]
     Active Substance: NORTRIPTYLINE HYDROCHLORIDE
     Route: 048
     Dates: start: 202011
  5. ALBUTEROL [Concomitant]
     Active Substance: ALBUTEROL
     Route: 055
  6. VENTOLIN [Concomitant]
     Active Substance: ALBUTEROL SULFATE
     Route: 055
  7. FUROSEMIDE [Concomitant]
     Active Substance: FUROSEMIDE
     Route: 065
  8. TAFAMIDIS [Concomitant]
     Active Substance: TAFAMIDIS
     Route: 048
     Dates: end: 20200606

REACTIONS (23)
  - Troponin T increased [Unknown]
  - Lymphocyte count decreased [Recovered/Resolved]
  - Creatinine urine increased [Recovered/Resolved]
  - Mean cell volume increased [Recovered/Resolved]
  - Blood creatinine increased [Recovered/Resolved]
  - Blood albumin decreased [Not Recovered/Not Resolved]
  - Protein total decreased [Not Recovered/Not Resolved]
  - Mean cell haemoglobin increased [Recovered/Resolved]
  - Urine albumin/creatinine ratio increased [Not Recovered/Not Resolved]
  - COVID-19 [Unknown]
  - Urine analysis abnormal [Unknown]
  - Blood cholesterol increased [Unknown]
  - Total cholesterol/HDL ratio increased [Unknown]
  - Low density lipoprotein increased [Unknown]
  - Brain natriuretic peptide increased [Unknown]
  - Blood urea increased [Unknown]
  - Cardiac failure [Unknown]
  - Urine protein/creatinine ratio increased [Not Recovered/Not Resolved]
  - Protein urine present [Recovered/Resolved]
  - Glomerular filtration rate decreased [Recovered/Resolved]
  - Hypotension [Unknown]
  - Vessel puncture site bruise [Recovering/Resolving]
  - Poor venous access [Unknown]

NARRATIVE: CASE EVENT DATE: 20211018
